FAERS Safety Report 8327449-9 (Version None)
Quarter: 2012Q2

REPORT INFORMATION
  Report Type: 
  Country: None (occurrence: None)
  Receive Date: 20120502
  Receipt Date: 20120423
  Transmission Date: 20120825
  Serious: Yes (Hospitalization, Disabling)
  Sender: FDA-Public Use
  Company Number: JP-BAYER-2012-011881

PATIENT
  Age: 71 Year
  Sex: Male

DRUGS (9)
  1. NEXAVAR [Suspect]
     Indication: HEPATIC NEOPLASM MALIGNANT
     Dosage: 400 MG, BID
     Route: 048
     Dates: start: 20111207, end: 20111216
  2. ACETAMINOPHEN [Concomitant]
     Dosage: DAILY DOSE 900 MG
     Route: 048
     Dates: start: 20120125
  3. NEXAVAR [Suspect]
     Indication: METASTASES TO LIVER
     Dosage: 400 MG, QD
     Route: 048
     Dates: start: 20120125, end: 20120202
  4. AMLODIPINE [Concomitant]
     Dosage: DAILY DOSE 2.5 MG
     Route: 048
  5. URSO 250 [Concomitant]
     Dosage: DAILY DOSE 300 MG
     Route: 048
  6. CELECOXIB [Concomitant]
     Dosage: DAILY DOSE 200 MG
     Route: 048
     Dates: start: 20111107
  7. OTHER ANTINEOPLASTIC AGENTS [Concomitant]
  8. VESICARE [Concomitant]
     Dosage: DAILY DOSE 5 MG
     Route: 048
  9. RABEPRAZOLE SODIUM [Concomitant]
     Dosage: DAILY DOSE 100 MG
     Route: 048
     Dates: start: 20110928

REACTIONS (2)
  - PALMAR-PLANTAR ERYTHRODYSAESTHESIA SYNDROME [None]
  - GUILLAIN-BARRE SYNDROME [None]
